FAERS Safety Report 5764116-X (Version None)
Quarter: 2008Q2

REPORT INFORMATION
  Report Type: 
  Country: None (occurrence: None)
  Receive Date: 20080604
  Receipt Date: 20080527
  Transmission Date: 20081010
  Serious: No
  Sender: FDA-Public Use
  Company Number: 2008BI011192

PATIENT
  Age: 47 Year
  Sex: Female

DRUGS (5)
  1. TYSABRI [Suspect]
     Indication: MULTIPLE SCLEROSIS
     Dosage: ; IV
     Route: 042
     Dates: start: 20061013
  2. BACLOFEN [Concomitant]
  3. LYRICA [Concomitant]
  4. SOLU-MEDROL [Concomitant]
  5. REBIF [Concomitant]

REACTIONS (2)
  - BASAL CELL CARCINOMA [None]
  - FATIGUE [None]
